FAERS Safety Report 9238182 (Version 2)
Quarter: 2013Q4

REPORT INFORMATION
  Report Type: Spontaneous
  Country: AU (occurrence: AU)
  Receive Date: 20130418
  Receipt Date: 20131002
  Transmission Date: 20140711
  Serious: Yes (Hospitalization, Other)
  Sender: FDA-Public Use
  Company Number: AU-009507513-1304AUS007362

PATIENT
  Age: 1 Day
  Sex: Female
  Weight: 3.4 kg

DRUGS (5)
  1. SAPHRIS [Suspect]
     Dosage: 10 MG, QD, FORMULATION: WAFER
     Route: 064
     Dates: start: 20111206, end: 20120814
  2. OLANZAPINE [Suspect]
     Dosage: 10 MG
     Route: 064
     Dates: start: 20120515
  3. RISPERIDONE [Suspect]
     Dosage: 2 MG
     Route: 064
     Dates: end: 20111206
  4. DIAZEPAM [Concomitant]
     Route: 064
  5. VITAMINS (UNSPECIFIED) [Suspect]
     Route: 048

REACTIONS (5)
  - Endotracheal intubation [Recovered/Resolved]
  - Streptococcal infection [Recovered/Resolved]
  - Oxygen supplementation [Recovered/Resolved]
  - Neonatal respiratory distress syndrome [Recovered/Resolved]
  - Foetal exposure during pregnancy [Unknown]
